FAERS Safety Report 18702878 (Version 1)
Quarter: 2021Q1

REPORT INFORMATION
  Report Type: Spontaneous
  Country: AT (occurrence: AT)
  Receive Date: 20210105
  Receipt Date: 20210105
  Transmission Date: 20210419
  Serious: Yes (Hospitalization)
  Sender: FDA-Public Use
  Company Number: AT-SEATTLE GENETICS-2020SGN05798

PATIENT
  Sex: Female
  Weight: 48.4 kg

DRUGS (9)
  1. ADCETRIS [Suspect]
     Active Substance: BRENTUXIMAB VEDOTIN
     Indication: HODGKIN^S DISEASE
     Dosage: 85 MILLIGRAM
     Route: 065
     Dates: start: 20200430
  2. ADCETRIS [Suspect]
     Active Substance: BRENTUXIMAB VEDOTIN
     Dosage: 106 MILLIGRAM
     Route: 065
     Dates: start: 20201111
  3. ADCETRIS [Suspect]
     Active Substance: BRENTUXIMAB VEDOTIN
     Dosage: 97 MILLIGRAM
     Route: 065
     Dates: start: 20201022
  4. DACARBAZINE. [Concomitant]
     Active Substance: DACARBAZINE
     Dosage: UNK
  5. ADCETRIS [Suspect]
     Active Substance: BRENTUXIMAB VEDOTIN
     Dosage: 88 MILLIGRAM
     Route: 065
     Dates: start: 20200522
  6. ADCETRIS [Suspect]
     Active Substance: BRENTUXIMAB VEDOTIN
     Dosage: 59 MILLIGRAM
     Route: 065
     Dates: start: 20200619
  7. ADCETRIS [Suspect]
     Active Substance: BRENTUXIMAB VEDOTIN
     Dosage: 85 MILLIGRAM
     Route: 065
     Dates: start: 20200710
  8. ADCETRIS [Suspect]
     Active Substance: BRENTUXIMAB VEDOTIN
     Dosage: 113 MILLIGRAM
     Route: 065
     Dates: start: 20201217
  9. ADCETRIS [Suspect]
     Active Substance: BRENTUXIMAB VEDOTIN
     Dosage: 90 MILLIGRAM
     Route: 065
     Dates: start: 20200904

REACTIONS (1)
  - General physical health deterioration [Recovered/Resolved]

NARRATIVE: CASE EVENT DATE: 20201202
